FAERS Safety Report 20817179 (Version 3)
Quarter: 2024Q3

REPORT INFORMATION
  Report Type: Report from Study
  Country: DE (occurrence: DE)
  Receive Date: 20220512
  Receipt Date: 20240710
  Transmission Date: 20241016
  Serious: No
  Sender: ROCHE
  Company Number: DE-ROCHE-3093957

PATIENT
  Age: 42 Year
  Sex: Female

DRUGS (2)
  1. OCREVUS [Suspect]
     Active Substance: OCRELIZUMAB
     Indication: Relapsing-remitting multiple sclerosis
     Route: 042
     Dates: start: 20210210
  2. COMIRNATY [Concomitant]
     Indication: Product used for unknown indication
     Dosage: 07/JUN/2021
     Route: 065
     Dates: start: 20210426

REACTIONS (7)
  - COVID-19 [Recovered/Resolved]
  - Liver function test increased [Recovering/Resolving]
  - Gamma-glutamyltransferase increased [Recovering/Resolving]
  - Epstein-Barr virus infection [Unknown]
  - Cholelithiasis [Recovered/Resolved]
  - Sensory disturbance [Not Recovered/Not Resolved]
  - Gait disturbance [Not Recovered/Not Resolved]

NARRATIVE: CASE EVENT DATE: 20220401
